FAERS Safety Report 12340795 (Version 1)
Quarter: 2016Q2

REPORT INFORMATION
  Report Type: Spontaneous
  Country: GB (occurrence: GB)
  Receive Date: 20160506
  Receipt Date: 20160506
  Transmission Date: 20160815
  Serious: Yes (Hospitalization)
  Sender: FDA-Public Use
  Company Number: GB-TEVA-656455ACC

PATIENT
  Age: 85 Year
  Sex: Female

DRUGS (15)
  1. FUROSEMIDE. [Concomitant]
     Active Substance: FUROSEMIDE
  2. PARACETAMOL [Concomitant]
     Active Substance: ACETAMINOPHEN
  3. SENNA [Concomitant]
     Active Substance: SENNA LEAF\SENNOSIDES\SENNOSIDES A AND B
  4. ALENDRONIC ACID [Concomitant]
     Active Substance: ALENDRONIC ACID
  5. ORAMORPH [Concomitant]
     Active Substance: MORPHINE SULFATE
  6. SERTRALINE [Concomitant]
     Active Substance: SERTRALINE HYDROCHLORIDE
  7. RAMIPRIL. [Concomitant]
     Active Substance: RAMIPRIL
  8. WARFARIN [Concomitant]
     Active Substance: WARFARIN
  9. MIRTAZAPINE HYDROCHLORIDE [Suspect]
     Active Substance: MIRTAZAPINE
     Indication: DEPRESSION SUICIDAL
     Route: 048
     Dates: start: 20160407, end: 20160411
  10. LANSOPRAZOLE. [Concomitant]
     Active Substance: LANSOPRAZOLE
  11. CO-CARELDOPA [Concomitant]
     Active Substance: CARBIDOPA\LEVODOPA
  12. GLYCERYL TRINITRATE [Concomitant]
     Active Substance: NITROGLYCERIN
  13. LETROZOLE. [Concomitant]
     Active Substance: LETROZOLE
  14. LORAZEPAM. [Concomitant]
     Active Substance: LORAZEPAM
  15. ZOMORPH [Concomitant]
     Active Substance: MORPHINE SULFATE

REACTIONS (3)
  - Angioedema [Recovered/Resolved]
  - Lip swelling [Recovered/Resolved]
  - Swollen tongue [Recovered/Resolved]
